FAERS Safety Report 10412252 (Version 1)
Quarter: 2014Q2

REPORT INFORMATION
  Report Type: Spontaneous
  Country: US (occurrence: None)
  Receive Date: 20140604
  Receipt Date: 20140604
  Transmission Date: 20141212
  Serious: Yes (Other)
  Sender: FDA-Public Use
  Company Number: 20100625CINRY1535

PATIENT
  Age: 40 Year
  Sex: Female

DRUGS (15)
  1. CINRYZE [Suspect]
     Route: 042
     Dates: start: 20100603
  2. SINGULAIR (MONTELUKAST) [Concomitant]
  3. ZOFRAN (ONDANSETRON) [Concomitant]
  4. VICODIN (VICODIN) [Concomitant]
  5. NASONEX (MOMETASONE [Concomitant]
  6. DANAZOL (DANAZOL) [Concomitant]
  7. MAXAIR (PIRBUTEROL ACETATE) [Concomitant]
  8. ZYRTEC (CETIRIZINE HYDROCHLORIDE) [Concomitant]
  9. PREVACID (LANSOPRAZOLE) [Concomitant]
  10. EPINEPHERINE (EPINEPHRINE HYDROCHLORIDE) [Concomitant]
  11. AMITRIPTYLINE (AMITRIPTYLINE) [Concomitant]
  12. WELLBUTRIN (BUPROPION) [Concomitant]
  13. KUDICAUBE CREAM (LIDOCAINE HYDROCHLORIDE) [Concomitant]
  14. TOPIROMATE [Concomitant]
  15. RANITIDINE (RANITIDINE) [Concomitant]

REACTIONS (2)
  - Incorrect drug administration duration [None]
  - Hypersensitivity [None]
